FAERS Safety Report 6062950-2 (Version None)
Quarter: 2009Q1

REPORT INFORMATION
  Report Type: 
  Country: None (occurrence: None)
  Receive Date: 20090203
  Receipt Date: 20090127
  Transmission Date: 20090719
  Serious: Yes (Disabling)
  Sender: FDA-Public Use
  Company Number: A0762701A

PATIENT
  Age: 59 Year
  Sex: Female
  Weight: 127.3 kg

DRUGS (10)
  1. ADVAIR DISKUS 100/50 [Suspect]
     Indication: ASTHMA
     Route: 055
     Dates: start: 20070101
  2. SYNTHROID [Concomitant]
     Dosage: .15MG UNKNOWN
     Route: 048
  3. CELEXA [Concomitant]
     Dosage: 40MG UNKNOWN
     Route: 048
  4. ZYRTEC [Concomitant]
     Dosage: 10MG UNKNOWN
     Route: 048
  5. PRILOSEC [Concomitant]
     Dosage: 20MG UNKNOWN
     Route: 048
  6. SINGULAIR [Concomitant]
     Dosage: 10MG UNKNOWN
     Route: 048
  7. LOVASTATIN [Concomitant]
     Dosage: 40MG UNKNOWN
     Route: 048
  8. TRAZODONE HCL [Concomitant]
     Dosage: 150MG UNKNOWN
     Route: 048
  9. FLONASE [Concomitant]
     Route: 055
  10. ALBUTEROL SULATE [Concomitant]
     Route: 055

REACTIONS (7)
  - CORONARY ARTERY OCCLUSION [None]
  - DYSPHONIA [None]
  - DYSPNOEA [None]
  - ELECTROCARDIOGRAM T WAVE INVERSION [None]
  - FATIGUE [None]
  - HAEMOPTYSIS [None]
  - OXYGEN SATURATION DECREASED [None]
